FAERS Safety Report 23615200 (Version 1)
Quarter: 2024Q1

REPORT INFORMATION
  Report Type: Spontaneous
  Country: US (occurrence: None)
  Receive Date: 20240311
  Receipt Date: 20240311
  Transmission Date: 20240409
  Serious: Yes (Other)
  Sender: FDA-Public Use
  Company Number: US-ROCHE-3517477

PATIENT

DRUGS (1)
  1. OCREVUS [Suspect]
     Active Substance: OCRELIZUMAB
     Indication: Relapsing multiple sclerosis
     Dosage: EVERY 6 MONTHS, FOR FIRST TIME AND EVERY 5 MONTHS AND 1 WEEK
     Route: 065

REACTIONS (1)
  - Pneumonia [Recovered/Resolved]
